FAERS Safety Report 5093218-9 (Version None)
Quarter: 2006Q3

REPORT INFORMATION
  Report Type: 
  Country: None (occurrence: None)
  Receive Date: 20060829
  Receipt Date: 20060829
  Transmission Date: 20061208
  Serious: No
  Sender: FDA-Public Use
  Company Number: None

PATIENT
  Age: 77 Year
  Sex: Male
  Weight: 88.6 kg

DRUGS (15)
  1. TIOTROPIUM 18 MCG CAPSULE (FOR INHALER) [Suspect]
     Indication: CHRONIC OBSTRUCTIVE PULMONARY DISEASE
     Dosage: 18 MCG, DAILY, INHALATION
     Route: 055
     Dates: start: 20060227, end: 20060324
  2. PREDNISONE TAB [Concomitant]
  3. SIMETHICONE [Concomitant]
  4. PENTOXIFYLLINE [Concomitant]
  5. FUROSEMIDE [Concomitant]
  6. POTASSIUM CHLORIDE [Concomitant]
  7. DORZOLAMIDE [Concomitant]
  8. DILTIAZEM HCL [Concomitant]
  9. GLYBURIDE [Concomitant]
  10. CHLORPHENIRAMINE MALEATE [Concomitant]
  11. TERAZOSIN HCL [Concomitant]
  12. OMEPRAZOLE [Concomitant]
  13. ALBUTEROL [Concomitant]
  14. FLUNISOLIDE [Concomitant]
  15. LISINOPRIL [Concomitant]

REACTIONS (4)
  - ABDOMINAL PAIN [None]
  - CONSTIPATION [None]
  - NAUSEA [None]
  - VOMITING [None]
